FAERS Safety Report 8265173-1 (Version None)
Quarter: 2012Q2

REPORT INFORMATION
  Report Type: 
  Country: None (occurrence: None)
  Receive Date: 20120406
  Receipt Date: 20120331
  Transmission Date: 20120825
  Serious: Yes (Death, Life-Threatening, Hospitalization)
  Sender: FDA-Public Use
  Company Number: EG-ROCHE-1052915

PATIENT
  Sex: Female
  Weight: 75 kg

DRUGS (7)
  1. MABTHERA [Suspect]
     Indication: LYMPHOCYTIC LEUKAEMIA
     Dosage: LAST DOSE PRIOR TO EVENT: 11/MAR/2012, CYCLE 1
     Route: 042
     Dates: start: 20120212
  2. MABTHERA [Suspect]
     Dosage: CYCLE 2-6
     Route: 042
     Dates: end: 20120329
  3. CHLORAMBUCIL [Suspect]
     Indication: LYMPHOCYTIC LEUKAEMIA
     Dosage: LAST DOSE PRIOR TO THE EVENT:11/MAR/2012
     Route: 048
     Dates: start: 20120212, end: 20120325
  4. CIPROFLOXACIN [Concomitant]
     Dates: start: 20120321, end: 20120323
  5. FLUCONAZOLE [Concomitant]
     Dates: start: 20120321, end: 20120323
  6. AUGMENTIN '125' [Concomitant]
     Dates: start: 20120321, end: 20120323
  7. INSULIN MIXTARD [Concomitant]
     Dosage: 70 UNIT
     Dates: start: 19970615

REACTIONS (2)
  - DEPRESSED LEVEL OF CONSCIOUSNESS [None]
  - CARDIAC ARREST [None]
